FAERS Safety Report 7904917-2 (Version None)
Quarter: 2011Q4

REPORT INFORMATION
  Report Type: 
  Country: None (occurrence: None)
  Receive Date: 20111109
  Receipt Date: 20111101
  Transmission Date: 20120403
  Serious: Yes (Other)
  Sender: FDA-Public Use
  Company Number: PHEH2011US08436

PATIENT
  Sex: Male

DRUGS (1)
  1. AFINITOR [Suspect]
     Indication: MALIGNANT URINARY TRACT NEOPLASM
     Dosage: 10 MG, QD
     Route: 048
     Dates: start: 20110401

REACTIONS (4)
  - FEMUR FRACTURE [None]
  - NEOPLASM MALIGNANT [None]
  - DRUG INEFFECTIVE [None]
  - NEOPLASM PROGRESSION [None]
